FAERS Safety Report 20632993 (Version 1)
Quarter: 2022Q1

REPORT INFORMATION
  Report Type: Spontaneous
  Country: US (occurrence: US)
  Receive Date: 20220324
  Receipt Date: 20220324
  Transmission Date: 20220423
  Serious: No
  Sender: FDA-Public Use
  Company Number: US-UPSHER-SMITH LABORATORIES, LLC-2021USL00879

PATIENT
  Sex: Male

DRUGS (8)
  1. PREVALITE [Suspect]
     Active Substance: CHOLESTYRAMINE
     Indication: Diarrhoea
     Dosage: 1 DOSAGE UNITS (1 PACKET), 1X/DAY AT NIGHT
     Dates: end: 2021
  2. CHOLESTYRAMINE [Suspect]
     Active Substance: CHOLESTYRAMINE
     Indication: Diarrhoea
     Dosage: 1 DOSAGE UNITS, 1X/DAY
     Dates: end: 2021
  3. CHOLESTYRAMINE [Suspect]
     Active Substance: CHOLESTYRAMINE
     Dosage: 1 DOSAGE UNITS, 1X/DAY
     Dates: start: 2021
  4. NALTREXONE [Concomitant]
     Active Substance: NALTREXONE
     Dosage: LOW DOSE
  5. LISINOPRIL [Concomitant]
     Active Substance: LISINOPRIL
  6. PROPRANOLOL [Concomitant]
     Active Substance: PROPRANOLOL HYDROCHLORIDE
  7. VITAMINS [Concomitant]
     Active Substance: VITAMINS
  8. TURKEY TAIL MUSHROOM EXTRACT [Concomitant]

REACTIONS (6)
  - Gastrointestinal disorder [Unknown]
  - Gastrointestinal sounds abnormal [Unknown]
  - Reaction to food additive [Unknown]
  - Oropharyngeal discomfort [Unknown]
  - Blood glucose increased [Unknown]
  - Abdominal discomfort [Unknown]
